FAERS Safety Report 12960370 (Version 1)
Quarter: 2016Q4

REPORT INFORMATION
  Report Type: Spontaneous
  Country: US (occurrence: US)
  Receive Date: 20161121
  Receipt Date: 20161121
  Transmission Date: 20170207
  Serious: Yes (Hospitalization)
  Sender: FDA-Public Use
  Company Number: US-B.I. PHARMACEUTICALS,INC./RIDGEFIELD-2016-BI-079353

PATIENT
  Age: 65 Year
  Sex: Male

DRUGS (4)
  1. FUROSEMIDE. [Concomitant]
     Active Substance: FUROSEMIDE
     Indication: FLUID RETENTION
     Route: 048
  2. METFORMIN [Concomitant]
     Active Substance: METFORMIN HYDROCHLORIDE
     Indication: GLUCOSE TOLERANCE IMPAIRED
     Route: 048
  3. PRADAXA [Suspect]
     Active Substance: DABIGATRAN ETEXILATE MESYLATE
     Indication: ATRIAL FIBRILLATION
     Dosage: ACTION(S) TAKEN WITH PRODUCT: DOSE NOT CHANGED
     Route: 048
     Dates: start: 201503
  4. METOPROLOL. [Concomitant]
     Active Substance: METOPROLOL
     Indication: EJECTION FRACTION DECREASED
     Route: 048
     Dates: start: 2015

REACTIONS (1)
  - Ventricular tachycardia [Recovered/Resolved]

NARRATIVE: CASE EVENT DATE: 20161028
